FAERS Safety Report 23259193 (Version 1)
Quarter: 2023Q4

REPORT INFORMATION
  Report Type: Spontaneous
  Country: KR (occurrence: None)
  Receive Date: 20231204
  Receipt Date: 20231204
  Transmission Date: 20240110
  Serious: Yes (Life-Threatening)
  Sender: FDA-Public Use
  Company Number: 2023A274028

PATIENT
  Age: 14610 Day
  Sex: Male
  Weight: 65.4 kg

DRUGS (1)
  1. NEXIUM [Suspect]
     Active Substance: ESOMEPRAZOLE MAGNESIUM
     Indication: Hepatic cancer
     Dosage: 1 DOSAGE FORM
     Route: 042
     Dates: start: 20190404, end: 20190404

REACTIONS (5)
  - Cardiac arrest [Recovered/Resolved]
  - Dyspnoea [Recovering/Resolving]
  - Pruritus [Recovering/Resolving]
  - Urticaria [Recovering/Resolving]
  - Nausea [Recovering/Resolving]

NARRATIVE: CASE EVENT DATE: 20190404
